FAERS Safety Report 23257382 (Version 1)
Quarter: 2023Q4

REPORT INFORMATION
  Report Type: Spontaneous
  Country: US (occurrence: US)
  Receive Date: 20231204
  Receipt Date: 20231204
  Transmission Date: 20240110
  Serious: Yes (Other)
  Sender: FDA-Public Use
  Company Number: US-STRIDES ARCOLAB LIMITED-2023SP013983

PATIENT
  Age: 23 Year
  Sex: Male

DRUGS (20)
  1. FLUOXETINE [Suspect]
     Active Substance: FLUOXETINE HYDROCHLORIDE
     Indication: Anxiety
     Dosage: UNK
     Route: 065
  2. FLUOXETINE [Suspect]
     Active Substance: FLUOXETINE HYDROCHLORIDE
     Indication: Cytogenetic abnormality
  3. FLUOXETINE [Suspect]
     Active Substance: FLUOXETINE HYDROCHLORIDE
     Indication: Mood swings
  4. ATOMOXETINE [Suspect]
     Active Substance: ATOMOXETINE
     Indication: Cytogenetic abnormality
     Dosage: UNK
     Route: 065
  5. ATOMOXETINE [Suspect]
     Active Substance: ATOMOXETINE
     Indication: Psychomotor hyperactivity
  6. CITALOPRAM [Suspect]
     Active Substance: CITALOPRAM HYDROBROMIDE
     Indication: Anxiety
     Dosage: UNK
     Route: 065
  7. CITALOPRAM [Suspect]
     Active Substance: CITALOPRAM HYDROBROMIDE
     Indication: Mood swings
  8. CITALOPRAM [Suspect]
     Active Substance: CITALOPRAM HYDROBROMIDE
     Indication: Cytogenetic abnormality
  9. GUANFACINE [Suspect]
     Active Substance: GUANFACINE
     Indication: Cytogenetic abnormality
     Dosage: UNK, ER, CONTROLLED RELEASE
     Route: 065
  10. GUANFACINE [Suspect]
     Active Substance: GUANFACINE
     Indication: Psychomotor hyperactivity
  11. MIRTAZAPINE [Suspect]
     Active Substance: MIRTAZAPINE
     Indication: Cytogenetic abnormality
     Dosage: UNK
     Route: 065
  12. MIRTAZAPINE [Suspect]
     Active Substance: MIRTAZAPINE
     Indication: Psychomotor hyperactivity
  13. DEXMETHYLPHENIDATE [Suspect]
     Active Substance: DEXMETHYLPHENIDATE
     Indication: Cytogenetic abnormality
     Dosage: UNK, XR, CONTROLLED RELEASE
     Route: 065
  14. DEXMETHYLPHENIDATE [Suspect]
     Active Substance: DEXMETHYLPHENIDATE
     Indication: Psychomotor hyperactivity
  15. CARBAMAZEPINE [Concomitant]
     Active Substance: CARBAMAZEPINE
     Indication: Cytogenetic abnormality
     Dosage: 800 MILLIGRAM, BID
     Route: 065
  16. CARBAMAZEPINE [Concomitant]
     Active Substance: CARBAMAZEPINE
     Indication: Mood swings
  17. VALPROATE [Concomitant]
     Active Substance: VALPROIC ACID
     Indication: Cytogenetic abnormality
     Dosage: UNK
     Route: 065
  18. LAMOTRIGINE [Concomitant]
     Active Substance: LAMOTRIGINE
     Indication: Cytogenetic abnormality
     Dosage: UNK
     Route: 065
  19. OXCARBAZEPINE [Concomitant]
     Active Substance: OXCARBAZEPINE
     Indication: Cytogenetic abnormality
     Dosage: CROSS-TITRATED WITH LAMOTRIGINE
     Route: 065
  20. ARIPIPRAZOLE [Concomitant]
     Active Substance: ARIPIPRAZOLE
     Indication: Cytogenetic abnormality
     Dosage: UNK
     Route: 065

REACTIONS (3)
  - Therapy non-responder [Unknown]
  - Drug ineffective [Unknown]
  - Off label use [Unknown]
